FAERS Safety Report 20162416 (Version 1)
Quarter: 2021Q4

REPORT INFORMATION
  Report Type: Spontaneous
  Country: NL (occurrence: NL)
  Receive Date: 20211208
  Receipt Date: 20211208
  Transmission Date: 20220303
  Serious: Yes (Life-Threatening, Hospitalization, Other)
  Sender: FDA-Public Use
  Company Number: NL-009507513-2110NLD002515

PATIENT
  Age: 71 Year
  Sex: Female
  Weight: 85 kg

DRUGS (2)
  1. KEYTRUDA [Suspect]
     Active Substance: PEMBROLIZUMAB
     Indication: Lung adenocarcinoma
     Dosage: 200 MILLIGRAM; NORMAL ENTRY-SPEED CONFORM PROTOCOL
     Route: 042
     Dates: start: 20211005
  2. KEYTRUDA [Suspect]
     Active Substance: PEMBROLIZUMAB
     Indication: Metastases to central nervous system
     Dosage: 200 MILLIGRAM
     Route: 042
     Dates: start: 20211008

REACTIONS (17)
  - Drug hypersensitivity [Unknown]
  - Respiratory failure [Unknown]
  - Pulmonary necrosis [Unknown]
  - Pulmonary cavitation [Unknown]
  - Livedo reticularis [Unknown]
  - Erythema [Unknown]
  - Blood pressure increased [Unknown]
  - Lung disorder [Unknown]
  - Volume blood increased [Unknown]
  - Traumatic lung injury [Unknown]
  - Pulmonary radiation injury [Unknown]
  - Pleural effusion [Unknown]
  - Rib fracture [Unknown]
  - Sputum retention [Unknown]
  - Circumstance or information capable of leading to medication error [Unknown]
  - Product use in unapproved indication [Unknown]
  - Inappropriate schedule of product administration [Unknown]

NARRATIVE: CASE EVENT DATE: 20211001
